FAERS Safety Report 7788568-9 (Version None)
Quarter: 2011Q3

REPORT INFORMATION
  Report Type: 
  Country: None (occurrence: None)
  Receive Date: 20110930
  Receipt Date: 20110906
  Transmission Date: 20111222
  Serious: No
  Sender: FDA-Public Use
  Company Number: US-ROXANE LABORATORIES, INC.-2011-RO-01280RO

PATIENT
  Sex: Female

DRUGS (9)
  1. ERYTHROMYCIN [Suspect]
  2. VERAPAMIL [Suspect]
  3. ACETYLSALICYLIC ACID SRT [Suspect]
  4. VICODIN [Suspect]
  5. PNEUMONIA SHOT [Suspect]
  6. CYCLOPHOSPHAMIDE [Suspect]
  7. PRAVASTATIN [Suspect]
  8. GATIFLOXACIN [Suspect]
  9. CODEINE SUL TAB [Suspect]

REACTIONS (2)
  - NAUSEA [None]
  - VOMITING [None]
